FAERS Safety Report 24406928 (Version 1)
Quarter: 2024Q4

REPORT INFORMATION
  Report Type: Spontaneous
  Country: US (occurrence: None)
  Receive Date: 20241007
  Receipt Date: 20241007
  Transmission Date: 20250115
  Serious: Yes (Death)
  Sender: Public
  Company Number: None

PATIENT
  Age: 13 Year
  Sex: Female

DRUGS (10)
  1. TOBRAMYCIN [Suspect]
     Active Substance: TOBRAMYCIN\TOBRAMYCIN SULFATE
     Dosage: FREQUENCY : TWICE A DAY;?
     Route: 055
     Dates: start: 20240401, end: 20240911
  2. ALBUTEROL [Concomitant]
     Active Substance: ALBUTEROL
  3. CULTURELLE [Concomitant]
     Active Substance: LACTOBACILLUS RHAMNOSUS
  4. hypersal 7% [Concomitant]
  5. KEPPRA [Concomitant]
     Active Substance: LEVETIRACETAM
  6. LANSOPRAZOLE [Concomitant]
  7. LEVOTHYROXINE [Concomitant]
  8. PHENOBARBITAL [Concomitant]
  9. PULMICORT [Concomitant]
  10. VALIUM [Concomitant]

REACTIONS (1)
  - Death [None]

NARRATIVE: CASE EVENT DATE: 20240911
